FAERS Safety Report 24729743 (Version 1)
Quarter: 2024Q4

REPORT INFORMATION
  Report Type: Spontaneous
  Country: US (occurrence: US)
  Receive Date: 20241213
  Receipt Date: 20241213
  Transmission Date: 20250115
  Serious: No
  Sender: ACCORD
  Company Number: US-Accord-446791

PATIENT
  Sex: Female
  Weight: 74.84 kg

DRUGS (1)
  1. LEVOTHYROXINE [Suspect]
     Active Substance: LEVOTHYROXINE
     Indication: Autoimmune thyroiditis
     Dosage: STRENGTH: 150 MCG, DAILY
     Route: 048
     Dates: start: 202407

REACTIONS (6)
  - Insomnia [Unknown]
  - Palpitations [Unknown]
  - Nasopharyngitis [Unknown]
  - Drug ineffective [Unknown]
  - Hunger [Unknown]
  - Weight increased [Unknown]
